FAERS Safety Report 4576459-6 (Version None)
Quarter: 2005Q1

REPORT INFORMATION
  Report Type: 
  Country: None (occurrence: None)
  Receive Date: 20050207
  Receipt Date: 20050113
  Transmission Date: 20050727
  Serious: Yes (Death, Other)
  Sender: FDA-Public Use
  Company Number: 2005014564

PATIENT
  Age: 89 Year
  Sex: Female

DRUGS (3)
  1. CELEBRA [Suspect]
     Indication: RHEUMATOID ARTHRITIS
     Dosage: 200 MG (200 MG, 1 IN 1 D), ORAL
     Route: 048
  2. APOREX (DEXTROPROPOXYPHENE HYDROCHLORIDE, PARACETAMOL) [Concomitant]
  3. ACETAMINOPHEN [Concomitant]

REACTIONS (3)
  - CARDIAC DISORDER [None]
  - DUODENAL ULCER HAEMORRHAGE [None]
  - DUODENAL ULCER PERFORATION [None]
